FAERS Safety Report 7662439-0 (Version None)
Quarter: 2011Q3

REPORT INFORMATION
  Report Type: 
  Country: None (occurrence: None)
  Receive Date: 20110805
  Receipt Date: 20101214
  Transmission Date: 20111222
  Serious: No
  Sender: FDA-Public Use
  Company Number: US-ABBOTT-10P-163-0692554-00

PATIENT
  Sex: Female
  Weight: 45.4 kg

DRUGS (10)
  1. LIPITOR [Concomitant]
     Indication: BLOOD CHOLESTEROL INCREASED
  2. METOPROLOL TARTRATE [Concomitant]
     Indication: CORONARY ARTERY BYPASS
  3. LEVOXYL [Concomitant]
     Indication: HYPOTHYROIDISM
  4. RAMIPRIL [Concomitant]
     Indication: CORONARY ARTERY BYPASS
  5. ASPIRIN [Concomitant]
     Indication: PRODUCT USED FOR UNKNOWN INDICATION
  6. FORTEO [Concomitant]
     Indication: OSTEOPOROSIS
  7. NIASPAN [Suspect]
     Indication: PRODUCT USED FOR UNKNOWN INDICATION
     Dates: start: 20080101
  8. NIASPAN [Suspect]
     Dosage: EVERY NIGHT
  9. NIASPAN [Suspect]
     Indication: PRODUCT USED FOR UNKNOWN INDICATION
     Dosage: EVERY NIGHT
  10. NIASPAN [Suspect]
     Dosage: 1000 MG PLUS 500 MG TAB

REACTIONS (3)
  - GENERALISED ERYTHEMA [None]
  - FLUSHING [None]
  - PRURITUS [None]
